FAERS Safety Report 6215798-X (Version None)
Quarter: 2009Q2

REPORT INFORMATION
  Report Type: 
  Country: None (occurrence: None)
  Receive Date: 20090603
  Receipt Date: 20090526
  Transmission Date: 20091009
  Serious: Yes (Other)
  Sender: FDA-Public Use
  Company Number: US-GENENTECH-281392

PATIENT
  Age: 14 Year
  Sex: Male

DRUGS (5)
  1. XOLAIR [Suspect]
     Indication: DRUG USE FOR UNKNOWN INDICATION
     Dosage: 225 MG, UNK
     Route: 065
     Dates: start: 20090416
  2. ADVAIR HFA [Concomitant]
     Indication: ASTHMA
     Dosage: 2 PUFF, BID
  3. ALLERGEN [Concomitant]
     Indication: DRUG USE FOR UNKNOWN INDICATION
  4. NASONEX [Concomitant]
     Indication: DRUG USE FOR UNKNOWN INDICATION
  5. XOPENEX [Concomitant]
     Indication: ASTHMA

REACTIONS (2)
  - DYSPHAGIA [None]
  - SENSATION OF FOREIGN BODY [None]
